FAERS Safety Report 9507559 (Version 1)
Quarter: 2013Q1

REPORT INFORMATION
  Report Type: Spontaneous
  Country: US (occurrence: None)
  Receive Date: 20130305
  Receipt Date: 20130305
  Transmission Date: 20140127
  Serious: Yes (Other)
  Sender: FDA-Public Use
  Company Number: 163-20785-12081269

PATIENT
  Age: 71 Year
  Sex: Female

DRUGS (2)
  1. THALOMID [Suspect]
     Route: 048
     Dates: start: 201106
  2. REVLIMID [Suspect]
     Indication: PLASMA CELL MYELOMA
     Dosage: 20 MG, 28 IN 28 D, PO
     Route: 048
     Dates: start: 20120121

REACTIONS (2)
  - Muscle spasms [None]
  - Insomnia [None]
